FAERS Safety Report 16839376 (Version 3)
Quarter: 2019Q4

REPORT INFORMATION
  Report Type: Spontaneous
  Country: ES (occurrence: ES)
  Receive Date: 20190923
  Receipt Date: 20191002
  Transmission Date: 20200122
  Serious: Yes (Other)
  Sender: FDA-Public Use
  Company Number: ES-JNJFOC-20190922817

PATIENT
  Age: 62 Year
  Sex: Male

DRUGS (2)
  1. IMBRUVICA [Suspect]
     Active Substance: IBRUTINIB
     Indication: MANTLE CELL LYMPHOMA STAGE IV
     Dosage: UNK
     Route: 065
     Dates: start: 201508
  2. NOXAFIL [Suspect]
     Active Substance: POSACONAZOLE
     Indication: PRODUCT USED FOR UNKNOWN INDICATION
     Dosage: UNK
     Route: 065

REACTIONS (12)
  - Cytomegalovirus infection [Unknown]
  - Pericardial effusion [Unknown]
  - Pleural effusion [Unknown]
  - Escherichia bacteraemia [Unknown]
  - Transaminases increased [Unknown]
  - Aspergillus infection [Unknown]
  - Pulmonary mass [Unknown]
  - Chest X-ray abnormal [Unknown]
  - Enterobacter bacteraemia [Unknown]
  - Central nervous system lesion [Unknown]
  - Intracranial mass [Unknown]
  - Hepatotoxicity [Unknown]

NARRATIVE: CASE EVENT DATE: 2016
